FAERS Safety Report 11011310 (Version 1)
Quarter: 2015Q2

REPORT INFORMATION
  Report Type: Report from Study
  Country: US (occurrence: US)
  Receive Date: 20150410
  Receipt Date: 20150410
  Transmission Date: 20150821
  Serious: Yes (Other)
  Sender: FDA-Public Use
  Company Number: US-GILEAD-2015-0146432

PATIENT
  Age: 87 Year
  Sex: Male

DRUGS (1)
  1. IDELALISIB [Suspect]
     Active Substance: IDELALISIB
     Indication: MANTLE CELL LYMPHOMA
     Dosage: 150 MG, BID
     Route: 048
     Dates: start: 20140920, end: 20150324

REACTIONS (4)
  - No therapeutic response [Unknown]
  - Disease progression [Unknown]
  - Ascites [Unknown]
  - Diarrhoea [Unknown]
